FAERS Safety Report 18909869 (Version 1)
Quarter: 2021Q1

REPORT INFORMATION
  Report Type: Spontaneous
  Country: US (occurrence: US)
  Receive Date: 20210218
  Receipt Date: 20210218
  Transmission Date: 20210420
  Serious: No
  Sender: FDA-Public Use
  Company Number: None

PATIENT
  Age: 59 Year
  Sex: Female
  Weight: 63.9 kg

DRUGS (10)
  1. ADVAIR INHALER 230?21 MCG [Concomitant]
  2. MONTELUKAST 10 MG [Concomitant]
     Active Substance: MONTELUKAST SODIUM
  3. ALBUTEROL PRN [Concomitant]
  4. CEVIMELINE 30 MG [Concomitant]
     Active Substance: CEVIMELINE
  5. LOSARTAN POTASSIUM 50 MG TAB [Suspect]
     Active Substance: LOSARTAN POTASSIUM
     Indication: HYPERTENSION
     Dosage: ?          QUANTITY:1 TABLET(S);?
     Route: 048
  6. OMEPRAZOLE 40 MG [Concomitant]
     Active Substance: OMEPRAZOLE
  7. MONTELUKAST 10 MG [Concomitant]
     Active Substance: MONTELUKAST SODIUM
  8. ESTRADIOL TRANSDERMAL SYSTEM [Concomitant]
     Active Substance: ESTRADIOL
  9. MULTI?VITAMIN [Concomitant]
     Active Substance: .ALPHA.-TOCOPHEROL ACETATE, DL-\ASCORBIC ACID\CYANOCOBALAMIN\FLUORIDE ION\FOLIC ACID\NIACIN\PYRIDOXINE\RIBOFLAVIN\THIAMINE\VITAMIN A\VITAMIN D
  10. TYLENOL AND ADVIL (GENERIC)  PRN [Concomitant]

REACTIONS (3)
  - Tension [None]
  - Middle insomnia [None]
  - Incorrect dose administered [None]

NARRATIVE: CASE EVENT DATE: 20210215
